FAERS Safety Report 10422884 (Version 1)
Quarter: 2014Q3

REPORT INFORMATION
  Report Type: Spontaneous
  Country: FR (occurrence: FR)
  Receive Date: 20140902
  Receipt Date: 20140902
  Transmission Date: 20150326
  Serious: Yes (Death, Life-Threatening)
  Sender: FDA-Public Use
  Company Number: FR-AUROBINDO-AUR-APL-2014-09322

PATIENT
  Age: 80 Year
  Sex: Male

DRUGS (4)
  1. KARDEGIC [Suspect]
     Active Substance: ASPIRIN LYSINE
     Indication: PRODUCT USED FOR UNKNOWN INDICATION
     Dosage: 75 MG, ONCE A DAY
     Route: 048
     Dates: start: 20140228
  2. CLOPIDOGREL [Suspect]
     Active Substance: CLOPIDOGREL BISULFATE
     Indication: PRODUCT USED FOR UNKNOWN INDICATION
     Dosage: 1 DF, DAILY
     Route: 048
     Dates: start: 20140228, end: 20140311
  3. PREVISCAN                          /00789001/ [Suspect]
     Active Substance: FLUINDIONE
     Indication: PRODUCT USED FOR UNKNOWN INDICATION
     Dosage: 15 MG, ONCE A DAY
     Route: 048
     Dates: start: 20140302, end: 20140311
  4. LOVENOX [Suspect]
     Active Substance: ENOXAPARIN SODIUM
     Indication: PRODUCT USED FOR UNKNOWN INDICATION
     Dosage: 4000 UI TWICE A DAY
     Route: 058
     Dates: start: 20140306, end: 20140310

REACTIONS (16)
  - Haemodynamic instability [Unknown]
  - Oxygen saturation decreased [Unknown]
  - Confusional state [Unknown]
  - Muscle haemorrhage [Fatal]
  - Haemorrhagic anaemia [Unknown]
  - Hypotension [Unknown]
  - General physical condition abnormal [Unknown]
  - Disorientation [Unknown]
  - Renal failure acute [Unknown]
  - Stent malfunction [Fatal]
  - Multi-organ failure [Unknown]
  - Hypercreatininaemia [Unknown]
  - Cardio-respiratory arrest [Fatal]
  - Acute pulmonary oedema [Unknown]
  - Haematoma [Unknown]
  - Blood creatine phosphokinase increased [Unknown]

NARRATIVE: CASE EVENT DATE: 20140309
